FAERS Safety Report 20404680 (Version 1)
Quarter: 2022Q1

REPORT INFORMATION
  Report Type: Spontaneous
  Country: US (occurrence: None)
  Receive Date: 20220128
  Receipt Date: 20220128
  Transmission Date: 20220423
  Serious: Yes (Other)
  Sender: FDA-Public Use
  Company Number: None

PATIENT
  Age: 36 Year
  Sex: Male
  Weight: 76.66 kg

DRUGS (1)
  1. DEXTROAMPHET SACCHARAT, AMPHET ASPARTATE, DEXTROAMPHET SULFATE AND AMP [Suspect]
     Active Substance: AMPHETAMINE ASPARTATE\AMPHETAMINE SULFATE\DEXTROAMPHETAMINE SACCHARATE\DEXTROAMPHETAMINE SULFATE
     Indication: Blood antidiuretic hormone
     Dosage: FREQUENCY : DAILY;?
     Route: 048
     Dates: end: 20190429

REACTIONS (3)
  - Feeling jittery [None]
  - Dry mouth [None]
  - Product substitution issue [None]

NARRATIVE: CASE EVENT DATE: 20210429
